FAERS Safety Report 19878590 (Version 1)
Quarter: 2021Q3

REPORT INFORMATION
  Report Type: Not Available
  Country: None (occurrence: None)
  Receive Date: 20210923
  Receipt Date: 20210923
  Transmission Date: 20211014
  Serious: No
  Sender: FDA-Public Use
  Company Number: US-AKORN-171091

PATIENT
  Sex: Male

DRUGS (1)
  1. DORZOLAMIDE HCL TIMOLOL MALEATE PF [Suspect]
     Active Substance: DORZOLAMIDE HYDROCHLORIDE\TIMOLOL MALEATE

REACTIONS (1)
  - Prostatic specific antigen increased [Not Recovered/Not Resolved]
